FAERS Safety Report 4752257-5 (Version None)
Quarter: 2005Q3

REPORT INFORMATION
  Report Type: 
  Country: None (occurrence: None)
  Receive Date: 20050823
  Receipt Date: 20050823
  Transmission Date: 20060218
  Serious: Yes (Other)
  Sender: FDA-Public Use
  Company Number: None

PATIENT
  Sex: Male
  Weight: 70.3 kg

DRUGS (11)
  1. CISPLATIN [Suspect]
     Indication: NEOPLASM
     Dosage: SEE IMAGE
     Dates: start: 20020725, end: 20050725
  2. RADIATION [Suspect]
     Dosage: SEE IMAGE
     Dates: start: 20050725
  3. ENALAPRIL MALEATE [Concomitant]
  4. FAMOTIDINE [Concomitant]
  5. NIFEDIPINE [Concomitant]
  6. PLAVIX [Concomitant]
  7. ZOFRAN [Concomitant]
  8. ALLOPURINOL [Concomitant]
  9. AMIFOSTINE CYSTALINE [Concomitant]
  10. COMPAZINE [Concomitant]
  11. DECADRON [Concomitant]

REACTIONS (1)
  - NEUTROPHIL COUNT DECREASED [None]
